FAERS Safety Report 12997496 (Version 1)
Quarter: 2016Q4

REPORT INFORMATION
  Report Type: Spontaneous
  Country: US (occurrence: US)
  Receive Date: 20161202
  Receipt Date: 20161202
  Transmission Date: 20170207
  Serious: Yes (Hospitalization)
  Sender: FDA-Public Use
  Company Number: None

PATIENT
  Age: 69 Year
  Sex: Male
  Weight: 91.5 kg

DRUGS (1)
  1. NAPROXEN. [Suspect]
     Active Substance: NAPROXEN
     Indication: PAIN
     Route: 048
     Dates: start: 20130919, end: 20160104

REACTIONS (7)
  - Chest pain [None]
  - Dyspnoea exertional [None]
  - Gastric haemorrhage [None]
  - Anaemia [None]
  - Abdominal distension [None]
  - Prostatomegaly [None]
  - Occult blood positive [None]

NARRATIVE: CASE EVENT DATE: 20160104
